FAERS Safety Report 6454758-0 (Version None)
Quarter: 2009Q4

REPORT INFORMATION
  Report Type: 
  Country: None (occurrence: None)
  Receive Date: 20091124
  Receipt Date: 20091118
  Transmission Date: 20100525
  Serious: Yes (Other)
  Sender: FDA-Public Use
  Company Number: US-WATSON-2009-06944

PATIENT
  Sex: Female

DRUGS (2)
  1. FENTANYL-100 [Suspect]
     Indication: PAIN
     Dosage: 1 PATCH, Q2-3 DAYS
     Route: 062
     Dates: start: 20090701
  2. FENTANYL-100 [Suspect]
     Dosage: 1 PATCH, Q2 -3 DAYS
     Route: 062
     Dates: start: 20080827, end: 20090701

REACTIONS (6)
  - ANALGESIC DRUG LEVEL INCREASED [None]
  - DISORIENTATION [None]
  - DRUG INEFFECTIVE [None]
  - LETHARGY [None]
  - LOSS OF CONSCIOUSNESS [None]
  - UNRESPONSIVE TO STIMULI [None]
